FAERS Safety Report 5657680-2 (Version None)
Quarter: 2008Q1

REPORT INFORMATION
  Report Type: 
  Country: None (occurrence: None)
  Receive Date: 20080310
  Receipt Date: 20080304
  Transmission Date: 20080703
  Serious: Yes (Other)
  Sender: FDA-Public Use
  Company Number: NL-BOEHRINGER INGELHEIM GMBH, GERMANY-2008-BP-03176RO

PATIENT
  Age: 20 Year
  Sex: Female

DRUGS (4)
  1. FLUCONAZOLE [Suspect]
     Indication: VAGINAL CANDIDIASIS
  2. ETHINYLESTRADIOL/CYPROTERON [Concomitant]
  3. NAPROXEN [Concomitant]
  4. TRIAMCINOLONE [Concomitant]
     Indication: DRUG ERUPTION
     Route: 061

REACTIONS (1)
  - DRUG ERUPTION [None]
